FAERS Safety Report 19679389 (Version 1)
Quarter: 2021Q3

REPORT INFORMATION
  Report Type: Spontaneous
  Country: GB (occurrence: GB)
  Receive Date: 20210809
  Receipt Date: 20210809
  Transmission Date: 20211014
  Serious: Yes (Life-Threatening)
  Sender: FDA-Public Use
  Company Number: GB-ABBVIE-21K-167-4031037-00

PATIENT
  Age: 38 Year
  Sex: Female
  Weight: 96 kg

DRUGS (6)
  1. BETAHISTINE [Concomitant]
     Active Substance: BETAHISTINE
     Indication: ILL-DEFINED DISORDER
  2. SERETIDE [Concomitant]
     Active Substance: FLUTICASONE PROPIONATE\SALMETEROL XINAFOATE
     Indication: ILL-DEFINED DISORDER
  3. TEICOPLANIN [Suspect]
     Active Substance: TEICOPLANIN
     Indication: ORTHOPAEDIC PROCEDURE
     Dosage: 400MG
     Route: 042
     Dates: start: 20210806, end: 20210806
  4. MORPHINE [Concomitant]
     Active Substance: MORPHINE
     Indication: ILL-DEFINED DISORDER
  5. LEVOBUPIVACAINE [Suspect]
     Active Substance: LEVOBUPIVACAINE
     Indication: NERVE BLOCK
     Dosage: 115MG
     Route: 030
     Dates: start: 20210806, end: 20210806
  6. ROCURONIUM [Suspect]
     Active Substance: ROCURONIUM BROMIDE
     Indication: ENDOTRACHEAL INTUBATION
     Dosage: 50MG
     Route: 065
     Dates: start: 20210806, end: 20210806

REACTIONS (1)
  - Anaphylactic reaction [Recovered/Resolved]

NARRATIVE: CASE EVENT DATE: 20210806
